FAERS Safety Report 8770166 (Version 2)
Quarter: 2012Q4

REPORT INFORMATION
  Report Type: 
  Country: CA (occurrence: CA)
  Receive Date: 20120906
  Receipt Date: 20121015
  Transmission Date: 20130627
  Serious: Yes (Life-Threatening, Disabling, Other)
  Sender: FDA-Public Use
  Company Number: CA-ASTRAZENECA-2012SE65132

PATIENT
  Age: 60 Year
  Sex: Male
  Weight: 83.9 kg

DRUGS (5)
  1. SEROQUEL XR [Suspect]
     Indication: SCHIZOPHRENIA
     Route: 048
  2. SEROQUEL XR [Suspect]
     Indication: SCHIZOPHRENIA
     Route: 048
  3. SEROQUEL XR [Suspect]
     Indication: SCHIZOPHRENIA
     Route: 048
  4. SEROQUEL XR [Suspect]
     Indication: SCHIZOPHRENIA
     Route: 048
  5. CELEXA [Concomitant]
     Indication: SCHIZOPHRENIA

REACTIONS (4)
  - Convulsion [Recovering/Resolving]
  - Rib fracture [Recovering/Resolving]
  - Upper limb fracture [Unknown]
  - Joint dislocation [Unknown]
